FAERS Safety Report 13578267 (Version 1)
Quarter: 2017Q2

REPORT INFORMATION
  Report Type: Report from Study
  Country: US (occurrence: US)
  Receive Date: 20170524
  Receipt Date: 20170524
  Transmission Date: 20170830
  Serious: Yes (Hospitalization)
  Sender: FDA-Public Use
  Company Number: US-PFIZER INC-2017213078

PATIENT
  Age: 21 Year
  Sex: Male
  Weight: 97 kg

DRUGS (16)
  1. METHOTREXATE SODIUM. [Suspect]
     Active Substance: METHOTREXATE SODIUM
     Dosage: 15 MG, UNK
     Route: 037
     Dates: start: 20170227, end: 20170227
  2. METHOTREXATE SODIUM. [Suspect]
     Active Substance: METHOTREXATE SODIUM
     Dosage: 15 MG, UNK
     Route: 037
     Dates: start: 20170307, end: 20170307
  3. CYTARABINE. [Suspect]
     Active Substance: CYTARABINE
     Indication: LEUKAEMIA
     Dosage: 160 MG, 1X/DAY
     Route: 042
     Dates: start: 20170220, end: 20170223
  4. VINCRISTINE SULFATE. [Suspect]
     Active Substance: VINCRISTINE SULFATE
     Indication: LEUKAEMIA
     Dosage: 2 MG, UNK
     Route: 042
     Dates: start: 20170307
  5. METHOTREXATE SODIUM. [Suspect]
     Active Substance: METHOTREXATE SODIUM
     Dosage: 15 MG, UNK
     Route: 037
     Dates: start: 20170313, end: 20170313
  6. CYTARABINE. [Suspect]
     Active Substance: CYTARABINE
     Dosage: 160 MG, 1X/DAY
     Route: 042
     Dates: start: 20170327, end: 20170330
  7. CYTARABINE. [Suspect]
     Active Substance: CYTARABINE
     Dosage: 160 MG, 1X/DAY
     Route: 042
     Dates: start: 20170403, end: 20170406
  8. PEGASPARGASE [Suspect]
     Active Substance: PEGASPARGASE
     Indication: LEUKAEMIA
     Dosage: 5475 IU, UNK
     Route: 042
     Dates: start: 20170307, end: 20170410
  9. METHOTREXATE SODIUM. [Suspect]
     Active Substance: METHOTREXATE SODIUM
     Indication: LEUKAEMIA
     Dosage: 15 MG, UNK
     Route: 037
     Dates: start: 20170220, end: 20170220
  10. CYTARABINE. [Suspect]
     Active Substance: CYTARABINE
     Dosage: 160 MG, 1X/DAY
     Route: 042
     Dates: start: 20170227, end: 20170302
  11. CYCLOPHOSPHAMIDE. [Suspect]
     Active Substance: CYCLOPHOSPHAMIDE
     Dosage: 120 MG, UNK
     Route: 042
     Dates: start: 20170327, end: 20170327
  12. MERCAPTOPURINE. [Suspect]
     Active Substance: MERCAPTOPURINE
     Indication: LEUKAEMIA
     Dosage: 125 MG, QHS
     Route: 048
     Dates: start: 20170220, end: 20170313
  13. ZOLOFT [Concomitant]
     Active Substance: SERTRALINE HYDROCHLORIDE
     Dosage: UNK
     Dates: start: 20170301
  14. CYCLOPHOSPHAMIDE. [Suspect]
     Active Substance: CYCLOPHOSPHAMIDE
     Indication: LEUKAEMIA
     Dosage: 120 MG, UNK
     Route: 042
     Dates: start: 20170220, end: 20170220
  15. RUXOLITINIB [Suspect]
     Active Substance: RUXOLITINIB
     Indication: LEUKAEMIA
     Dosage: 40 MG, 2X/DAY
     Route: 048
     Dates: start: 20170220
  16. MERCAPTOPURINE. [Suspect]
     Active Substance: MERCAPTOPURINE
     Dosage: 125 MG, QHS
     Route: 048
     Dates: start: 20170327, end: 20170411

REACTIONS (2)
  - Bacteraemia [Recovered/Resolved]
  - Headache [Recovered/Resolved]

NARRATIVE: CASE EVENT DATE: 20170412
